FAERS Safety Report 9630849 (Version 3)
Quarter: 2013Q4

REPORT INFORMATION
  Report Type: Spontaneous
  Country: BR (occurrence: BR)
  Receive Date: 20131018
  Receipt Date: 20131029
  Transmission Date: 20140711
  Serious: Yes (Hospitalization)
  Sender: FDA-Public Use
  Company Number: BR-ASTRAZENECA-2013SE72272

PATIENT
  Age: 48 Year
  Sex: Female

DRUGS (7)
  1. SEROQUEL XRO [Suspect]
     Indication: PARANOIA
     Route: 048
     Dates: start: 201209
  2. SEROQUEL XRO [Suspect]
     Indication: BIPOLAR DISORDER
     Route: 048
     Dates: start: 201209
  3. SEROQUEL XRO [Suspect]
     Indication: PARANOIA
     Route: 048
  4. SEROQUEL XRO [Suspect]
     Indication: BIPOLAR DISORDER
     Route: 048
  5. PROZAC [Concomitant]
  6. BUPROPION [Concomitant]
     Indication: SMOKING CESSATION THERAPY
     Dates: start: 201307
  7. CLOPIXOL [Concomitant]
     Dates: start: 2013

REACTIONS (5)
  - Accidental overdose [Unknown]
  - Hallucination, auditory [Recovered/Resolved]
  - Weight increased [Not Recovered/Not Resolved]
  - Increased appetite [Not Recovered/Not Resolved]
  - Fatigue [Not Recovered/Not Resolved]
